FAERS Safety Report 5204792-3 (Version None)
Quarter: 2007Q1

REPORT INFORMATION
  Report Type: 
  Country: None (occurrence: None)
  Receive Date: 20070110
  Receipt Date: 20060720
  Transmission Date: 20070707
  Serious: Yes (Hospitalization)
  Sender: FDA-Public Use
  Company Number: US-BRISTOL-MYERS SQUIBB COMPANY-13447941

PATIENT
  Age: 59 Year
  Sex: Male
  Weight: 90 kg

DRUGS (2)
  1. ABILIFY [Suspect]
     Indication: SCHIZOPHRENIA
     Dates: end: 20060712
  2. RISPERDAL [Suspect]
     Indication: SCHIZOPHRENIA
     Dates: end: 20060712

REACTIONS (1)
  - NEUROLEPTIC MALIGNANT SYNDROME [None]
